FAERS Safety Report 7451618-3 (Version None)
Quarter: 2011Q2

REPORT INFORMATION
  Report Type: 
  Country: None (occurrence: None)
  Receive Date: 20110502
  Receipt Date: 20100317
  Transmission Date: 20111010
  Serious: No
  Sender: FDA-Public Use
  Company Number: US-ASTRAZENECA-2010SE11970

PATIENT
  Age: 79 Year
  Sex: Female
  Weight: 63.5 kg

DRUGS (9)
  1. PREVACID [Suspect]
     Route: 048
     Dates: start: 20090724
  2. PREVACID [Suspect]
     Indication: HYPERCHLORHYDRIA
     Route: 048
     Dates: start: 19920205
  3. BRAND DESIPRAMINE [Concomitant]
     Indication: DIZZINESS
  4. NEXIUM [Suspect]
     Indication: GASTROOESOPHAGEAL REFLUX DISEASE
     Route: 048
     Dates: start: 20090722, end: 20090724
  5. PREVACID [Suspect]
     Route: 048
     Dates: start: 20090724
  6. ZOCOR [Concomitant]
     Indication: BLOOD CHOLESTEROL INCREASED
  7. PREVACID [Suspect]
     Route: 048
     Dates: end: 20090722
  8. PREVACID [Suspect]
     Indication: GASTROOESOPHAGEAL REFLUX DISEASE
     Route: 048
     Dates: start: 19920205
  9. PREVACID [Suspect]
     Route: 048
     Dates: end: 20090722

REACTIONS (2)
  - FATIGUE [None]
  - LETHARGY [None]
